FAERS Safety Report 4824104-4 (Version None)
Quarter: 2005Q4

REPORT INFORMATION
  Report Type: 
  Country: None (occurrence: None)
  Receive Date: 20051108
  Receipt Date: 20051031
  Transmission Date: 20060501
  Serious: Yes (Hospitalization)
  Sender: FDA-Public Use
  Company Number: 2005PV003243

PATIENT
  Age: 61 Year
  Sex: Female
  Weight: 92.9874 kg

DRUGS (16)
  1. BYETTA [Suspect]
     Indication: DIABETES MELLITUS NON-INSULIN-DEPENDENT
     Dosage: SEE IMAGE
     Route: 058
     Dates: start: 20051007, end: 20051007
  2. BYETTA [Suspect]
     Indication: DIABETES MELLITUS NON-INSULIN-DEPENDENT
     Dosage: SEE IMAGE
     Route: 058
     Dates: start: 20051016
  3. AVANDIA [Concomitant]
  4. LANTUS [Concomitant]
  5. LOPRESSOR [Concomitant]
  6. COZAAR [Concomitant]
  7. PREMARIN [Concomitant]
  8. SYNTHROID [Concomitant]
  9. LEXAPRO [Concomitant]
  10. ALBUTEROL [Concomitant]
  11. SINGULAIR [Concomitant]
  12. XANAX [Concomitant]
  13. LIPITOR [Concomitant]
  14. ASPIRIN [Concomitant]
  15. PLAVIX [Concomitant]
  16. HYZAAR [Concomitant]

REACTIONS (8)
  - BLOOD GLUCOSE INCREASED [None]
  - CORONARY ARTERY OCCLUSION [None]
  - CORONARY ARTERY STENOSIS [None]
  - DECREASED APPETITE [None]
  - NAUSEA [None]
  - SKIN ULCER [None]
  - VOMITING [None]
  - WEIGHT DECREASED [None]
